FAERS Safety Report 17203201 (Version 1)
Quarter: 2019Q4

REPORT INFORMATION
  Report Type: Spontaneous
  Country: CA (occurrence: CA)
  Receive Date: 20191226
  Receipt Date: 20191226
  Transmission Date: 20200122
  Serious: Yes (Other)
  Sender: FDA-Public Use
  Company Number: CA-TEVA-2019-CA-1156367

PATIENT
  Age: 67 Year
  Sex: Female
  Weight: 80 kg

DRUGS (18)
  1. BRINZOLAMIDE [Concomitant]
     Active Substance: BRINZOLAMIDE
  2. ACETAMINOPHEN. [Concomitant]
     Active Substance: ACETAMINOPHEN
  3. ARANESP [Concomitant]
     Active Substance: DARBEPOETIN ALFA
  4. HYDROMORPH CONTIN [Concomitant]
     Active Substance: HYDROMORPHONE
  5. BISOPROLOL [Concomitant]
     Active Substance: BISOPROLOL
  6. CLONIDINE. [Concomitant]
     Active Substance: CLONIDINE
  7. PREGABALIN. [Suspect]
     Active Substance: PREGABALIN
     Indication: NEURALGIA
     Dosage: 25 MILLIGRAM DAILY;
     Route: 048
  8. FERROUS SULFATE. [Concomitant]
     Active Substance: FERROUS SULFATE
  9. HYDROMORPHONE [Concomitant]
     Active Substance: HYDROMORPHONE
  10. LORAZEPAM. [Concomitant]
     Active Substance: LORAZEPAM
  11. NORTRIPTYLINE [Concomitant]
     Active Substance: NORTRIPTYLINE
  12. SENOKOT [Concomitant]
     Active Substance: SENNOSIDES
  13. AMLODIPINE [Concomitant]
     Active Substance: AMLODIPINE BESYLATE
  14. CALCIUM CARBONATE. [Concomitant]
     Active Substance: CALCIUM CARBONATE
  15. DOCUSATE [Concomitant]
     Active Substance: DOCUSATE
  16. FUROSEMIDE. [Concomitant]
     Active Substance: FUROSEMIDE
  17. CELEBREX [Concomitant]
     Active Substance: CELECOXIB
  18. MAGNESIUM [Concomitant]
     Active Substance: MAGNESIUM

REACTIONS (2)
  - Tremor [Recovered/Resolved]
  - Intention tremor [Recovered/Resolved]
